FAERS Safety Report 5411626-0 (Version None)
Quarter: 2007Q3

REPORT INFORMATION
  Report Type: 
  Country: None (occurrence: None)
  Receive Date: 20070810
  Receipt Date: 20070731
  Transmission Date: 20080115
  Serious: Yes (Other)
  Sender: FDA-Public Use
  Company Number: BR-PFIZER INC-2007064431

PATIENT
  Sex: Female
  Weight: 54 kg

DRUGS (5)
  1. EXUBERA [Suspect]
     Indication: DIABETES MELLITUS
     Dosage: DAILY DOSE:7MG-FREQ:DAILY
     Route: 055
     Dates: start: 20070608, end: 20070621
  2. INSULIN DETEMIR [Concomitant]
     Dosage: DAILY DOSE:9I.U.-FREQ:DAILY
  3. ENALAPRIL MALEATE [Concomitant]
     Dosage: DAILY DOSE:20MG-FREQ:DAILY
     Route: 048
     Dates: start: 19950723
  4. EUTHYROX [Concomitant]
     Dosage: DAILY DOSE:75MCG-FREQ:DAILY
     Route: 048
     Dates: start: 19970723
  5. AAS [Concomitant]
     Dosage: DAILY DOSE:100MG-FREQ:DAILY
     Route: 048
     Dates: start: 19950723

REACTIONS (3)
  - BLOOD GLUCOSE INCREASED [None]
  - DISORIENTATION [None]
  - HYPOGLYCAEMIA [None]
